FAERS Safety Report 20585671 (Version 2)
Quarter: 2022Q1

REPORT INFORMATION
  Report Type: Report from Study
  Country: MX (occurrence: MX)
  Receive Date: 20220312
  Receipt Date: 20220317
  Transmission Date: 20220424
  Serious: Yes (Other)
  Sender: FDA-Public Use
  Company Number: MX-NOVARTISPH-NVSC2022MX057962

PATIENT
  Sex: Female

DRUGS (2)
  1. EXELON [Suspect]
     Active Substance: RIVASTIGMINE TARTRATE
     Indication: Dementia Alzheimer^s type
     Dosage: 13.3 MG
     Route: 003
     Dates: start: 2016
  2. EXELON [Suspect]
     Active Substance: RIVASTIGMINE TARTRATE
     Dosage: 18 MG
     Route: 003
     Dates: start: 2016

REACTIONS (3)
  - Hydrocephalus [Unknown]
  - Dementia Alzheimer^s type [Unknown]
  - Malaise [Unknown]
